FAERS Safety Report 11096753 (Version 5)
Quarter: 2015Q3

REPORT INFORMATION
  Report Type: Spontaneous
  Country: FR (occurrence: FR)
  Receive Date: 20150507
  Receipt Date: 20150902
  Transmission Date: 20151125
  Serious: Yes (Life-Threatening, Hospitalization, Other)
  Sender: FDA-Public Use
  Company Number: FR-ASTRAZENECA-2015SE41238

PATIENT
  Age: 397 Month
  Sex: Female
  Weight: 52 kg

DRUGS (21)
  1. NEXPLANON [Concomitant]
     Active Substance: ETONOGESTREL
     Indication: CONTRACEPTION
     Dates: start: 201404, end: 201409
  2. XEROQUEL [Suspect]
     Active Substance: QUETIAPINE FUMARATE
     Indication: ALCOHOL USE
     Route: 048
     Dates: start: 201312
  3. XEROQUEL [Suspect]
     Active Substance: QUETIAPINE FUMARATE
     Indication: BIPOLAR DISORDER
     Route: 048
     Dates: start: 20140122, end: 20140628
  4. XEROQUEL [Suspect]
     Active Substance: QUETIAPINE FUMARATE
     Indication: ABNORMAL BEHAVIOUR
     Route: 048
     Dates: start: 20140122, end: 20140628
  5. ISOPTINE [Concomitant]
     Active Substance: VERAPAMIL HYDROCHLORIDE
     Dates: start: 20140630, end: 201410
  6. DUOPLAVIN [Concomitant]
     Active Substance: ASPIRIN\CLOPIDOGREL
     Dates: start: 20140630
  7. CRESTOR [Suspect]
     Active Substance: ROSUVASTATIN CALCIUM
     Route: 048
     Dates: start: 20140630
  8. ASPIRIN. [Concomitant]
     Active Substance: ASPIRIN
  9. XEROQUEL [Suspect]
     Active Substance: QUETIAPINE FUMARATE
     Indication: ABNORMAL BEHAVIOUR
     Route: 048
     Dates: start: 201312
  10. XEROQUEL [Suspect]
     Active Substance: QUETIAPINE FUMARATE
     Indication: ABNORMAL BEHAVIOUR
     Route: 048
     Dates: start: 2014
  11. SUBUTEX [Concomitant]
     Active Substance: BUPRENORPHINE HYDROCHLORIDE
     Dates: start: 201406
  12. ZOPICLONE [Concomitant]
     Active Substance: ZOPICLONE
     Indication: INSOMNIA
     Dates: start: 20140122
  13. XEROQUEL [Suspect]
     Active Substance: QUETIAPINE FUMARATE
     Indication: ALCOHOL USE
     Route: 048
     Dates: start: 2014
  14. THERALENE [Concomitant]
     Active Substance: TRIMEPRAZINE
     Indication: INSOMNIA
     Dates: start: 20140122
  15. KARDEGIC [Concomitant]
     Active Substance: ASPIRIN LYSINE
     Dates: start: 201406
  16. XEROQUEL [Suspect]
     Active Substance: QUETIAPINE FUMARATE
     Indication: BIPOLAR DISORDER
     Route: 048
     Dates: start: 2014
  17. PANTOPRAZOLE [Concomitant]
     Active Substance: PANTOPRAZOLE SODIUM
     Indication: ABDOMINAL PAIN UPPER
     Dates: start: 20140122
  18. XEROQUEL [Suspect]
     Active Substance: QUETIAPINE FUMARATE
     Indication: BIPOLAR DISORDER
     Route: 048
     Dates: start: 201312
  19. XEROQUEL [Suspect]
     Active Substance: QUETIAPINE FUMARATE
     Indication: ALCOHOL USE
     Route: 048
     Dates: start: 20140122, end: 20140628
  20. PLAVIX [Concomitant]
     Active Substance: CLOPIDOGREL BISULFATE
     Dates: start: 201406, end: 20140610
  21. VALIUM [Concomitant]
     Active Substance: DIAZEPAM

REACTIONS (15)
  - Blood pressure decreased [Recovered/Resolved]
  - Extrasystoles [Recovered/Resolved]
  - High density lipoprotein decreased [Unknown]
  - Off label use [Unknown]
  - Arteriospasm coronary [Unknown]
  - Nocturia [Recovered/Resolved]
  - Weight decreased [Unknown]
  - Arteriosclerosis [Unknown]
  - Prinzmetal angina [Recovered/Resolved]
  - Weight increased [Recovered/Resolved]
  - Acute coronary syndrome [Recovered/Resolved]
  - Blood triglycerides increased [Unknown]
  - Intestinal infarction [Recovered/Resolved]
  - Acute myocardial infarction [Recovered/Resolved with Sequelae]
  - Somnolence [Unknown]

NARRATIVE: CASE EVENT DATE: 201312
